FAERS Safety Report 5808526-0 (Version None)
Quarter: 2008Q3

REPORT INFORMATION
  Report Type: 
  Country: None (occurrence: None)
  Receive Date: 20080702
  Receipt Date: 20080410
  Transmission Date: 20090109
  Serious: Yes (Other)
  Sender: FDA-Public Use
  Company Number: US-WYE -H03602808

PATIENT
  Age: 54 Year
  Weight: 93.34 kg

DRUGS (1)
  1. ADVIL [Suspect]
     Indication: ARTHRALGIA
     Dosage: 2 CAPLETS AT BEDTIME, ORAL
     Route: 048
     Dates: start: 20080408, end: 20080409

REACTIONS (2)
  - DYSPNOEA [None]
  - PHARYNGEAL OEDEMA [None]
